FAERS Safety Report 13851119 (Version 1)
Quarter: 2017Q3

REPORT INFORMATION
  Report Type: Report from Study
  Country: US (occurrence: US)
  Receive Date: 20170809
  Receipt Date: 20170809
  Transmission Date: 20171127
  Serious: Yes (Other)
  Sender: FDA-Public Use
  Company Number: US-ASTELLAS-2017US031545

PATIENT
  Sex: Male

DRUGS (2)
  1. ERLOTINIB [Suspect]
     Active Substance: ERLOTINIB
     Indication: NON-SMALL CELL LUNG CANCER
     Route: 048
  2. FENTANYL. [Concomitant]
     Active Substance: FENTANYL
     Indication: PRODUCT USED FOR UNKNOWN INDICATION
     Dosage: 50 MCG/HOUR, UNKNOWN FREQ.
     Route: 061

REACTIONS (10)
  - Back pain [Unknown]
  - Musculoskeletal discomfort [Unknown]
  - Neoplasm [Unknown]
  - Neutropenia [Unknown]
  - Insomnia [Unknown]
  - Skin exfoliation [Unknown]
  - Malaise [Unknown]
  - Nausea [Unknown]
  - Rash [Unknown]
  - Lung carcinoma cell type unspecified recurrent [Unknown]
